FAERS Safety Report 19933493 (Version 3)
Quarter: 2022Q1

REPORT INFORMATION
  Report Type: Spontaneous
  Country: US (occurrence: US)
  Receive Date: 20211008
  Receipt Date: 20220201
  Transmission Date: 20220424
  Serious: Yes (Hospitalization, Other)
  Sender: FDA-Public Use
  Company Number: US-SA-SAC20211007000925

PATIENT
  Age: 78 Year
  Sex: Male

DRUGS (10)
  1. DUPIXENT [Suspect]
     Active Substance: DUPILUMAB
     Indication: Dermatitis atopic
     Dosage: 300 MG, QOW
     Route: 058
     Dates: start: 20210512
  2. KEFLEX [Suspect]
     Active Substance: CEPHALEXIN
  3. BETAMETHASONE [Concomitant]
     Active Substance: BETAMETHASONE
     Indication: Dermatitis atopic
  4. ALLOPURINOL [Concomitant]
     Active Substance: ALLOPURINOL
  5. AMMONIUM LACTATE [Concomitant]
     Active Substance: AMMONIUM LACTATE
  6. SALICYLIC ACID [Concomitant]
     Active Substance: SALICYLIC ACID
  7. AMLODIPINE [Concomitant]
     Active Substance: AMLODIPINE BESYLATE
     Dosage: 5 MG
  8. LIPITOR [Concomitant]
     Active Substance: ATORVASTATIN CALCIUM
     Dosage: 5 MG
  9. CEPHALEXIN MONOHYDRATE [Concomitant]
     Active Substance: CEPHALEXIN MONOHYDRATE
     Dosage: 500 MG, Q8H
  10. DESOXIMETASONE [Concomitant]
     Active Substance: DESOXIMETASONE

REACTIONS (17)
  - Peripheral swelling [Unknown]
  - Swelling [Unknown]
  - Oedema [Unknown]
  - Drug hypersensitivity [Unknown]
  - Cellulitis [Unknown]
  - Eczema [Unknown]
  - Burning sensation [Unknown]
  - Pruritus [Unknown]
  - Infection [Unknown]
  - Pain in extremity [Unknown]
  - Gait disturbance [Unknown]
  - Erythema [Unknown]
  - Stasis dermatitis [Unknown]
  - Discomfort [Unknown]
  - Skin fissures [Unknown]
  - Rash [Unknown]
  - Dermatitis atopic [Unknown]

NARRATIVE: CASE EVENT DATE: 20210101
